FAERS Safety Report 25701453 (Version 1)
Quarter: 2025Q3

REPORT INFORMATION
  Report Type: Spontaneous
  Country: US (occurrence: None)
  Receive Date: 20250819
  Receipt Date: 20250819
  Transmission Date: 20251020
  Serious: Yes (Hospitalization)
  Sender: FDA-CTU
  Company Number: None

PATIENT
  Age: 39 Year
  Sex: Male
  Weight: 178.3 kg

DRUGS (8)
  1. CYCLOPHOSPHAMIDE [Suspect]
     Active Substance: CYCLOPHOSPHAMIDE
  2. CYTARABINE [Suspect]
     Active Substance: CYTARABINE
  3. DEXAMETHASONE [Suspect]
     Active Substance: DEXAMETHASONE
  4. DOXORUBICIN [Suspect]
     Active Substance: DOXORUBICIN
  5. MESNA [Suspect]
     Active Substance: MESNA
  6. METHOTREXATE [Suspect]
     Active Substance: METHOTREXATE
  7. PONATINIB [Suspect]
     Active Substance: PONATINIB
  8. VINCRISTINE SULFATE [Suspect]
     Active Substance: VINCRISTINE SULFATE

REACTIONS (6)
  - Pyrexia [None]
  - Epistaxis [None]
  - Musculoskeletal pain [None]
  - Mucosal inflammation [None]
  - Therapy interrupted [None]
  - Pancytopenia [None]

NARRATIVE: CASE EVENT DATE: 20250809
